FAERS Safety Report 14366704 (Version 1)
Quarter: 2018Q1

REPORT INFORMATION
  Report Type: Spontaneous
  Country: US (occurrence: US)
  Receive Date: 20180109
  Receipt Date: 20180109
  Transmission Date: 20180509
  Serious: Yes (Hospitalization, Other)
  Sender: FDA-Public Use
  Company Number: US-ASTRAZENECA-2018SE01616

PATIENT
  Age: 69 Year
  Sex: Female
  Weight: 49.9 kg

DRUGS (6)
  1. TUDORZA PRESSAIR [Suspect]
     Active Substance: ACLIDINIUM BROMIDE
     Indication: PULMONARY HYPERTENSION
     Route: 055
     Dates: start: 2014
  2. OPSUMIT [Concomitant]
     Active Substance: MACITENTAN
     Indication: PULMONARY HYPERTENSION
     Route: 048
  3. OXYGEN. [Concomitant]
     Active Substance: OXYGEN
     Dosage: CONTINUOUS USE OF OXYGEN 2 TO 3 LITERS
     Dates: start: 2015
  4. COUMADIN [Concomitant]
     Active Substance: WARFARIN SODIUM
     Indication: ANTICOAGULANT THERAPY
     Dosage: 5 TO 7.5MG VARIES PER DAY DEPENDING ON HER LAB RESULTS FOR BLOOD THINNE
     Route: 048
     Dates: start: 201501
  5. FLOVENT [Concomitant]
     Active Substance: FLUTICASONE PROPIONATE
     Indication: INHALATION THERAPY
     Dosage: AS REQUIRED
     Route: 055
  6. SYMBICORT [Suspect]
     Active Substance: BUDESONIDE\FORMOTEROL FUMARATE DIHYDRATE
     Indication: ASTHMA
     Dosage: 160/4.5 MCG TWO TIMES A DAY
     Route: 055
     Dates: start: 2006

REACTIONS (15)
  - Psoriasis [Unknown]
  - Emphysema [Unknown]
  - Breast cancer [Unknown]
  - Gait disturbance [Unknown]
  - Drug dose omission [Unknown]
  - Pneumonia [Recovered/Resolved]
  - Off label use [Unknown]
  - Thrombosis [Unknown]
  - Cataract [Unknown]
  - Influenza [Recovered/Resolved]
  - Staphylococcal infection [Recovered/Resolved]
  - Bronchitis [Unknown]
  - Device malfunction [Unknown]
  - Pulmonary hypertension [Unknown]
  - Chronic obstructive pulmonary disease [Unknown]

NARRATIVE: CASE EVENT DATE: 2011
